FAERS Safety Report 7531669-0 (Version None)
Quarter: 2011Q2

REPORT INFORMATION
  Report Type: 
  Country: None (occurrence: None)
  Receive Date: 20110608
  Receipt Date: 20110523
  Transmission Date: 20111010
  Serious: Yes (Hospitalization, Other)
  Sender: FDA-Public Use
  Company Number: US-BAYER-2010-002102

PATIENT
  Age: 36 Year
  Sex: Female
  Weight: 126.98 kg

DRUGS (4)
  1. CLARITIN-D 24 HOUR [Concomitant]
     Dosage: 1 DAILY
  2. LOVASTATIN [Concomitant]
  3. METOPROLOL SUCCINATE [Concomitant]
  4. YAZ [Suspect]
     Indication: CONTRACEPTION
     Dosage: UNK
     Route: 048
     Dates: start: 20090301, end: 20090701

REACTIONS (3)
  - ANXIETY [None]
  - FEAR [None]
  - MYOCARDIAL INFARCTION [None]
